FAERS Safety Report 13726725 (Version 1)
Quarter: 2017Q3

REPORT INFORMATION
  Report Type: Report from Study
  Country: US (occurrence: US)
  Receive Date: 20170706
  Receipt Date: 20170706
  Transmission Date: 20171127
  Serious: Yes (Hospitalization, Other)
  Sender: FDA-Public Use
  Company Number: US-ELI_LILLY_AND_COMPANY-US201706013012

PATIENT
  Age: 76 Year
  Sex: Female

DRUGS (4)
  1. FLECAINIDE [Concomitant]
     Active Substance: FLECAINIDE
     Dosage: 500 MG, BID
  2. LOSARTAN. [Concomitant]
     Active Substance: LOSARTAN
     Dosage: 100 MG, UNK
  3. TERIPARATIDE [Suspect]
     Active Substance: TERIPARATIDE
     Indication: OSTEOPOROSIS
     Dosage: 20 UG, UNKNOWN
     Route: 058
     Dates: start: 20161213
  4. METOPROLOL. [Concomitant]
     Active Substance: METOPROLOL
     Dosage: 50 MG, UNK

REACTIONS (9)
  - Atrial fibrillation [Unknown]
  - Herpes zoster [Recovered/Resolved]
  - Rash [Recovered/Resolved]
  - Dizziness [Recovered/Resolved]
  - Headache [Unknown]
  - Facial bones fracture [Recovered/Resolved]
  - Syncope [Recovered/Resolved]
  - Fall [Recovered/Resolved]
  - Paraesthesia [Recovered/Resolved]

NARRATIVE: CASE EVENT DATE: 20170228
